FAERS Safety Report 22383085 (Version 4)
Quarter: 2023Q2

REPORT INFORMATION
  Report Type: Spontaneous
  Country: IT (occurrence: IT)
  Receive Date: 20230530
  Receipt Date: 20230613
  Transmission Date: 20230721
  Serious: Yes (Other)
  Sender: FDA-Public Use
  Company Number: IT-ROCHE-3347821

PATIENT
  Age: 75 Year
  Sex: Male

DRUGS (10)
  1. RITUXIMAB [Suspect]
     Active Substance: RITUXIMAB
     Indication: Diffuse large B-cell lymphoma
     Dosage: UNK (FIRST LINE SYSTEMIC TREATMENT, RITUXIMAB-COMP)
     Dates: start: 20220713, end: 20220926
  2. RITUXIMAB [Suspect]
     Active Substance: RITUXIMAB
     Dosage: UNK (SECOND LINE SYSTEMIC TREATMENT, POLATUZUMAB BR)
     Dates: start: 20221102, end: 20221214
  3. PREDNISONE [Suspect]
     Active Substance: PREDNISONE
     Indication: Diffuse large B-cell lymphoma
     Dosage: UNK (FIRST LINE SYSTEMIC TREATMENT, RITUXIMAB-COMP)
     Dates: start: 20220713, end: 20220926
  4. LENALIDOMIDE [Suspect]
     Active Substance: LENALIDOMIDE
     Indication: Diffuse large B-cell lymphoma
     Dosage: UNK (THIRD LINE SYSTEMIC TREATMENT, TAFASITAMAB-LENALIDOMIDE)
     Dates: start: 20230217, end: 20230509
  5. ONCOVIN [Suspect]
     Active Substance: VINCRISTINE SULFATE
     Indication: Diffuse large B-cell lymphoma
     Dosage: UNK (FIRST LINE SYSTEMIC TREATMENT, RITUXIMAB-COMP)
     Dates: start: 20220713, end: 20220926
  6. BENDAMUSTINE [Suspect]
     Active Substance: BENDAMUSTINE
     Indication: Diffuse large B-cell lymphoma
     Dosage: UNK (SECOND LINE SYSTEMIC TREATMENT, POLATUZUMAB BR)
     Dates: start: 20221102, end: 20221214
  7. CYCLOPHOSPHAMIDE [Suspect]
     Active Substance: CYCLOPHOSPHAMIDE
     Indication: Diffuse large B-cell lymphoma
     Dosage: UNK (FIRST LINE SYSTEMIC TREATMENT, RITUXIMAB-COMP)
     Dates: start: 20220713, end: 20220926
  8. DOXORUBICIN [Suspect]
     Active Substance: DOXORUBICIN
     Indication: Diffuse large B-cell lymphoma
     Dosage: UNK (FIRST LINE SYSTEMIC TREATMENT, RITUXIMAB-COMP)
     Dates: start: 20220713, end: 20220926
  9. TAFASITAMAB-CXIX [Suspect]
     Active Substance: TAFASITAMAB-CXIX
     Indication: Diffuse large B-cell lymphoma
     Dosage: UNK (THIRD LINE SYSTEMIC TREATMENT, TAFASITAMAB-LENALIDOMIDE)
     Dates: start: 20230217, end: 20230509
  10. POLATUZUMAB VEDOTIN [Suspect]
     Active Substance: POLATUZUMAB VEDOTIN
     Indication: Diffuse large B-cell lymphoma
     Dosage: UNK (SECOND LINE SYSTEMIC TREATMENT, POLATUZUMAB BR)
     Dates: start: 20221102, end: 20221214

REACTIONS (7)
  - Cytomegalovirus infection reactivation [Unknown]
  - Catheter site thrombosis [Unknown]
  - Urosepsis [Recovered/Resolved]
  - Bacterial disease carrier [Unknown]
  - Neoplasm progression [Unknown]
  - Off label use [Unknown]
  - Product use issue [Unknown]

NARRATIVE: CASE EVENT DATE: 20220731
